FAERS Safety Report 15646661 (Version 1)
Quarter: 2018Q4

REPORT INFORMATION
  Report Type: Spontaneous
  Country: ES (occurrence: ES)
  Receive Date: 20181122
  Receipt Date: 20181122
  Transmission Date: 20190205
  Serious: Yes (Hospitalization, Other)
  Sender: FDA-Public Use
  Company Number: ES-AUROBINDO-AUR-APL-2018-056265

PATIENT
  Age: 64 Year
  Sex: Female

DRUGS (2)
  1. OXALIPLATIN. [Suspect]
     Active Substance: OXALIPLATIN
     Indication: ADENOCARCINOMA OF COLON
     Dosage: 150 MILLIGRAM, CYCLICAL
     Route: 042
     Dates: start: 20180802, end: 20181011
  2. FLUOROURACIL. [Interacting]
     Active Substance: FLUOROURACIL
     Indication: ADENOCARCINOMA OF COLON
     Dosage: FLUOROURACILO 704 MG + INFUSOR DE 5FU 4226 MG ; CYCLICAL
     Route: 042
     Dates: start: 20180802, end: 20181013

REACTIONS (2)
  - Febrile neutropenia [Recovered/Resolved]
  - Hepatitis [Recovered/Resolved]

NARRATIVE: CASE EVENT DATE: 20181013
